FAERS Safety Report 8041292-X (Version None)
Quarter: 2012Q1

REPORT INFORMATION
  Report Type: 
  Country: None (occurrence: None)
  Receive Date: 20120109
  Receipt Date: 20111226
  Transmission Date: 20120608
  Serious: Yes (Hospitalization, Other)
  Sender: FDA-Public Use
  Company Number: 2011MA018076

PATIENT
  Sex: Female
  Weight: 51.3 kg

DRUGS (6)
  1. HYDROCORTISONE [Concomitant]
  2. SYNCHRONIC [Concomitant]
  3. DIGOXIN [Suspect]
     Indication: PRODUCT USED FOR UNKNOWN INDICATION
     Dosage: 0.25 MG;QD;PO
     Route: 048
     Dates: start: 20070730, end: 20080928
  4. NORVASC [Concomitant]
  5. REVATIO [Concomitant]
  6. LEVOTHYROXINE SODIUM [Concomitant]

REACTIONS (32)
  - CHEST PAIN [None]
  - CARDIAC INDEX DECREASED [None]
  - FLUID RETENTION [None]
  - PITUITARY TUMOUR BENIGN [None]
  - SINUSITIS [None]
  - RHINORRHOEA [None]
  - PULMONARY HYPERTENSION [None]
  - RESTRICTIVE PULMONARY DISEASE [None]
  - RIGHT VENTRICULAR FAILURE [None]
  - COUGH [None]
  - SNORING [None]
  - FATIGUE [None]
  - ATRIAL HYPERTROPHY [None]
  - PLEURAL EFFUSION [None]
  - WHEEZING [None]
  - WEIGHT INCREASED [None]
  - PULMONARY ARTERIAL HYPERTENSION [None]
  - DYSPNOEA EXERTIONAL [None]
  - DIZZINESS [None]
  - DYSPNOEA [None]
  - TRICUSPID VALVE DISEASE [None]
  - EMBOLISM [None]
  - BLOOD GLUCOSE DECREASED [None]
  - CARDIAC VALVE DISEASE [None]
  - PERICARDIAL EFFUSION [None]
  - RIGHT VENTRICULAR HYPERTROPHY [None]
  - ATRIAL SEPTAL DEFECT [None]
  - DIASTOLIC DYSFUNCTION [None]
  - BLOOD PRESSURE DECREASED [None]
  - ADRENAL INSUFFICIENCY [None]
  - PULMONARY VALVE DISEASE [None]
  - EJECTION FRACTION DECREASED [None]
